FAERS Safety Report 20851056 (Version 1)
Quarter: 2022Q2

REPORT INFORMATION
  Report Type: Spontaneous
  Country: US (occurrence: US)
  Receive Date: 20220519
  Receipt Date: 20220519
  Transmission Date: 20220721
  Serious: No
  Sender: FDA-Public Use
  Company Number: US-PFIZER INC-202200442275

PATIENT
  Age: 61 Year
  Sex: Male

DRUGS (3)
  1. RAPAMUNE [Suspect]
     Active Substance: SIROLIMUS
     Indication: Lung transplant
     Dosage: 1 MG, 1X/DAY, 90 DAY SUPPLY, QUANTITY 90
  2. RAPAMUNE [Suspect]
     Active Substance: SIROLIMUS
     Dosage: 0.5 MG, 1X/DAY, 90 DAY SUPPLY, QUANTITY 90
     Route: 048
  3. RAPAMUNE [Suspect]
     Active Substance: SIROLIMUS
     Dosage: 0.5 MG, 1X/DAY, QUANTITY 30
     Route: 048

REACTIONS (2)
  - Gastric disorder [Unknown]
  - Off label use [Unknown]
